FAERS Safety Report 24878253 (Version 2)
Quarter: 2025Q1

REPORT INFORMATION
  Report Type: Report from Study
  Country: MX (occurrence: MX)
  Receive Date: 20250123
  Receipt Date: 20250203
  Transmission Date: 20250408
  Serious: Yes (Hospitalization, Other)
  Sender: SANOFI AVENTIS
  Company Number: MX-SANOFI-02379977

PATIENT
  Sex: Female

DRUGS (2)
  1. DUPILUMAB [Suspect]
     Active Substance: DUPILUMAB
     Indication: Dermatitis atopic
  2. DUPILUMAB [Suspect]
     Active Substance: DUPILUMAB
     Dosage: 300 MG, QOW

REACTIONS (11)
  - Hospitalisation [Unknown]
  - Urosepsis [Unknown]
  - Pain in jaw [Unknown]
  - Muscle spasms [Unknown]
  - Hypoglycaemia [Unknown]
  - Hypotension [Unknown]
  - Odynophagia [Unknown]
  - Asthenia [Unknown]
  - Vision blurred [Unknown]
  - White blood cell count increased [Unknown]
  - Arthralgia [Unknown]
